FAERS Safety Report 7504521-4 (Version None)
Quarter: 2011Q2

REPORT INFORMATION
  Report Type: 
  Country: None (occurrence: None)
  Receive Date: 20110525
  Receipt Date: 20110511
  Transmission Date: 20111010
  Serious: Yes (Hospitalization)
  Sender: FDA-Public Use
  Company Number: US-UCBSA-032629

PATIENT
  Sex: Female
  Weight: 60.78 kg

DRUGS (8)
  1. LACOSAMIDE [Suspect]
     Indication: EPILEPSY
     Route: 048
     Dates: start: 20110127
  2. KEPPRA [Concomitant]
     Dates: start: 20110317
  3. KEPPRA [Concomitant]
     Dates: start: 20110303, end: 20110316
  4. NAPROXEN [Concomitant]
     Indication: NEUROPATHY PERIPHERAL
     Dates: start: 20100701
  5. KEPPRA [Concomitant]
     Indication: EPILEPSY
     Dates: start: 20100413, end: 20110217
  6. KEPPRA [Concomitant]
     Dates: start: 20110218, end: 20110302
  7. PAXIL [Concomitant]
     Indication: DEPRESSION
     Dates: start: 20101001
  8. TRAZODONE HCL [Concomitant]
     Indication: INSOMNIA
     Dates: start: 20100601

REACTIONS (1)
  - CONVULSION [None]
